FAERS Safety Report 18627281 (Version 1)
Quarter: 2020Q4

REPORT INFORMATION
  Report Type: Spontaneous
  Country: MX (occurrence: MX)
  Receive Date: 20201217
  Receipt Date: 20201217
  Transmission Date: 20210114
  Serious: No
  Sender: FDA-Public Use
  Company Number: MX-LUPIN PHARMACEUTICALS INC.-2020-05096

PATIENT
  Age: 58 Year
  Sex: Female

DRUGS (4)
  1. SULFAMETHOXAZOLE AND TRIMETHOPRIM [Suspect]
     Active Substance: SULFAMETHOXAZOLE\TRIMETHOPRIM
     Indication: ACTINOMYCOSIS
     Dosage: UNK UNK, BID
     Route: 065
  2. STREPTOMYCIN [Suspect]
     Active Substance: STREPTOMYCIN SULFATE
     Indication: ACTINOMYCOSIS
     Dosage: 3 GRAM WEEKLY (1G ON THE THIRD DAY)
     Route: 030
  3. STREPTOMYCIN [Suspect]
     Active Substance: STREPTOMYCIN SULFATE
     Dosage: UP TO A MAXIMUM OF 50 G
     Route: 030
  4. CIPROFLOXACIN. [Suspect]
     Active Substance: CIPROFLOXACIN
     Indication: ACTINOMYCOSIS
     Dosage: 500 MILLIGRAM, BID
     Route: 065

REACTIONS (1)
  - Headache [Unknown]
